FAERS Safety Report 5714180-9 (Version None)
Quarter: 2008Q2

REPORT INFORMATION
  Report Type: 
  Country: None (occurrence: None)
  Receive Date: 20080423
  Receipt Date: 20071119
  Transmission Date: 20081010
  Serious: No
  Sender: FDA-Public Use
  Company Number: US-KINGPHARMUSA00001-K200701495

PATIENT

DRUGS (4)
  1. SKELAXIN [Suspect]
     Indication: NON-CARDIAC CHEST PAIN
     Dosage: 800 MG, 1-2 TIMES DAILY
     Route: 048
     Dates: start: 20071115, end: 20071118
  2. LOTREL /01289101/ [Concomitant]
     Indication: BLOOD PRESSURE
     Dosage: 5/20, QD
     Route: 048
  3. VITAMINS NOS [Concomitant]
     Dosage: ONE, QD
     Route: 048
  4. ASPIRIN [Concomitant]
     Dosage: ONE, QD (BABY ASPIRIN)
     Route: 048

REACTIONS (3)
  - HEART RATE INCREASED [None]
  - NERVOUSNESS [None]
  - TREMOR [None]
